FAERS Safety Report 9236599 (Version 1)
Quarter: 2013Q2

REPORT INFORMATION
  Report Type: Report from Study
  Country: US (occurrence: US)
  Receive Date: 20130417
  Receipt Date: 20130417
  Transmission Date: 20140414
  Serious: Yes (Hospitalization)
  Sender: FDA-Public Use
  Company Number: US-ABBOTT-13P-163-1074207-00

PATIENT
  Sex: Male
  Weight: 94.43 kg

DRUGS (4)
  1. HUMIRA [Suspect]
     Indication: CROHN^S DISEASE
     Dates: start: 2011, end: 2012
  2. HUMIRA [Suspect]
     Dates: start: 2012, end: 2012
  3. FLAGYL [Concomitant]
     Indication: CROHN^S DISEASE
  4. CIMZIA [Concomitant]
     Indication: CROHN^S DISEASE
     Dates: start: 2012

REACTIONS (4)
  - Large intestinal stenosis [Recovered/Resolved]
  - Localised intraabdominal fluid collection [Recovered/Resolved]
  - Crohn^s disease [Recovered/Resolved]
  - Drug ineffective [Not Recovered/Not Resolved]
